FAERS Safety Report 4761889-X (Version None)
Quarter: 2005Q3

REPORT INFORMATION
  Report Type: 
  Country: None (occurrence: None)
  Receive Date: 20050906
  Receipt Date: 20050725
  Transmission Date: 20060218
  Serious: Yes (Hospitalization, Other)
  Sender: FDA-Public Use
  Company Number: US-BRISTOL-MYERS SQUIBB COMPANY-13048335

PATIENT
  Sex: Male
  Weight: 64 kg

DRUGS (13)
  1. CETUXIMAB [Suspect]
     Indication: NON-SMALL CELL LUNG CANCER
     Route: 042
     Dates: start: 20050718, end: 20050718
  2. CARBOPLATIN [Suspect]
     Indication: NON-SMALL CELL LUNG CANCER
     Dates: start: 20050718, end: 20050718
  3. DOCETAXEL [Suspect]
     Indication: NON-SMALL CELL LUNG CANCER
     Route: 042
     Dates: start: 20050718, end: 20050718
  4. LORAZEPAM [Concomitant]
     Indication: ANXIETY
     Route: 048
     Dates: start: 20020101
  5. TYLENOL [Concomitant]
     Indication: PAIN
     Route: 048
     Dates: start: 19950101
  6. EQUATE [Concomitant]
     Indication: PROPHYLAXIS
     Route: 048
     Dates: start: 20020101
  7. VITAMIN D [Concomitant]
     Indication: HYPOVITAMINOSIS
     Dates: start: 20050601
  8. CLARITIN [Concomitant]
     Indication: MULTIPLE ALLERGIES
     Route: 048
     Dates: start: 20050501
  9. PROTONIX [Concomitant]
     Indication: GASTROOESOPHAGEAL REFLUX DISEASE
     Route: 048
     Dates: start: 20050707
  10. COMPAZINE [Concomitant]
     Indication: NAUSEA
     Route: 048
     Dates: start: 20050627
  11. DECADRON [Concomitant]
     Indication: PROPHYLAXIS
     Dosage: 3MG/DAY IS TAKEN THE DAY OF CHEMO AND THE DAY AFTER CHEMO.
     Route: 048
     Dates: start: 20050718
  12. ALOXI [Concomitant]
     Indication: VOMITING
     Route: 042
     Dates: start: 20050627
  13. BENADRYL [Concomitant]
     Indication: VOMITING
     Route: 042
     Dates: start: 20050627

REACTIONS (4)
  - CEREBROVASCULAR ACCIDENT [None]
  - HEMIPARESIS [None]
  - NAUSEA [None]
  - VOMITING [None]
